FAERS Safety Report 20534533 (Version 4)
Quarter: 2022Q3

REPORT INFORMATION
  Report Type: Spontaneous
  Country: BR (occurrence: BR)
  Receive Date: 20220302
  Receipt Date: 20220729
  Transmission Date: 20221026
  Serious: Yes (Hospitalization, Other)
  Sender: FDA-Public Use
  Company Number: BR-BIOGEN-2019BI00733736

PATIENT
  Age: 51 Year
  Sex: Female
  Weight: 52 kg

DRUGS (11)
  1. TYSABRI [Suspect]
     Active Substance: NATALIZUMAB
     Indication: Multiple sclerosis
     Route: 050
     Dates: start: 201809, end: 201906
  2. TYSABRI [Suspect]
     Active Substance: NATALIZUMAB
     Route: 050
     Dates: start: 201905, end: 202003
  3. TYSABRI [Suspect]
     Active Substance: NATALIZUMAB
     Route: 050
     Dates: start: 2019, end: 202003
  4. TYSABRI [Suspect]
     Active Substance: NATALIZUMAB
     Route: 050
  5. TYSABRI [Suspect]
     Active Substance: NATALIZUMAB
     Route: 050
     Dates: start: 2019, end: 2021
  6. TERBINAFINE HYDROCHLORIDE [Concomitant]
     Active Substance: TERBINAFINE HYDROCHLORIDE
     Indication: Product used for unknown indication
     Route: 050
  7. ALENDRONIC ACID [Concomitant]
     Active Substance: ALENDRONIC ACID
     Indication: Product used for unknown indication
     Route: 050
  8. SOLU-MEDROL [Concomitant]
     Active Substance: METHYLPREDNISOLONE SODIUM SUCCINATE
     Indication: Product used for unknown indication
     Route: 050
  9. OMEPRAZOLE [Concomitant]
     Active Substance: OMEPRAZOLE
     Indication: Product used for unknown indication
     Route: 050
  10. RANITIDINE [Concomitant]
     Active Substance: RANITIDINE
     Indication: Product used for unknown indication
     Route: 050
  11. ACETAMINOPHEN [Concomitant]
     Active Substance: ACETAMINOPHEN
     Indication: Pain
     Route: 050

REACTIONS (26)
  - Thyroid mass [Recovered/Resolved]
  - Multiple sclerosis relapse [Unknown]
  - Noninfective encephalitis [Unknown]
  - Incorrect drug administration rate [Recovered/Resolved]
  - Alopecia [Not Recovered/Not Resolved]
  - Skin lesion [Not Recovered/Not Resolved]
  - Scar [Not Recovered/Not Resolved]
  - Rash macular [Not Recovered/Not Resolved]
  - Memory impairment [Not Recovered/Not Resolved]
  - Osteoporosis [Not Recovered/Not Resolved]
  - Endometriosis [Not Recovered/Not Resolved]
  - Myalgia [Not Recovered/Not Resolved]
  - Renal disorder [Unknown]
  - Pain [Unknown]
  - Gastritis [Recovered/Resolved]
  - Vasodilatation [Recovered/Resolved]
  - Depression [Not Recovered/Not Resolved]
  - Visual impairment [Not Recovered/Not Resolved]
  - Insomnia [Unknown]
  - Fall [Recovered/Resolved]
  - Dark circles under eyes [Unknown]
  - Pain [Recovered/Resolved]
  - Nausea [Unknown]
  - Hypersensitivity [Recovered/Resolved]
  - Pruritus [Not Recovered/Not Resolved]
  - Pyrexia [Recovered/Resolved]

NARRATIVE: CASE EVENT DATE: 20181201
